FAERS Safety Report 24773824 (Version 2)
Quarter: 2025Q3

REPORT INFORMATION
  Report Type: Report from Study
  Country: KR (occurrence: KR)
  Receive Date: 20241225
  Receipt Date: 20250810
  Transmission Date: 20251021
  Serious: Yes (Other)
  Sender: ALEXION PHARMACEUTICALS
  Company Number: KR-ASTRAZENECA-202412GLO016092KR

PATIENT
  Age: 50 Year
  Sex: Female
  Weight: 51.6 kg

DRUGS (7)
  1. OLAPARIB [Suspect]
     Active Substance: OLAPARIB
     Indication: Ovarian cancer
     Dosage: 300 MILLIGRAM, BID
     Dates: start: 20231001
  2. TANTUM [Concomitant]
     Active Substance: BENZYDAMINE HYDROCHLORIDE
     Indication: Aphthous ulcer
  3. Diclomed [Concomitant]
     Indication: Aphthous ulcer
     Dates: start: 20231116, end: 20231122
  4. PERIDEX [Concomitant]
     Active Substance: CHLORHEXIDINE GLUCONATE
  5. METOCLOPRAMIDE [Concomitant]
     Active Substance: METOCLOPRAMIDE
  6. Becalm [Concomitant]
  7. LYRICA [Concomitant]
     Active Substance: PREGABALIN

REACTIONS (3)
  - Neutropenia [Recovered/Resolved]
  - Neuropathy peripheral [Recovering/Resolving]
  - Nausea [Recovered/Resolved]

NARRATIVE: CASE EVENT DATE: 20231026
